FAERS Safety Report 10204476 (Version 1)
Quarter: 2014Q2

REPORT INFORMATION
  Report Type: Spontaneous
  Country: US (occurrence: US)
  Receive Date: 20140529
  Receipt Date: 20140529
  Transmission Date: 20141212
  Serious: Yes (Other)
  Sender: FDA-Public Use
  Company Number: US-ACTAVIS-2014-11511

PATIENT
  Age: 44 Year
  Sex: Female

DRUGS (2)
  1. VALPROIC ACID (UNKNOWN) [Suspect]
     Indication: AFFECT LABILITY
     Dosage: 250 MG DAILY
     Route: 065
  2. VALPROIC ACID (UNKNOWN) [Suspect]
     Dosage: 500 MG, UNKNOWN
     Route: 065

REACTIONS (1)
  - Parkinsonism [Recovered/Resolved]
